FAERS Safety Report 5501316-8 (Version None)
Quarter: 2007Q4

REPORT INFORMATION
  Report Type: 
  Country: None (occurrence: None)
  Receive Date: 20071029
  Receipt Date: 20071018
  Transmission Date: 20080405
  Serious: Yes (Other)
  Sender: FDA-Public Use
  Company Number: GB-GILEAD-2006-0009329

PATIENT
  Sex: Male
  Weight: 73 kg

DRUGS (4)
  1. VIREAD [Suspect]
     Indication: HIV INFECTION
     Route: 048
     Dates: start: 20050823, end: 20060119
  2. DIDANOSINE [Concomitant]
     Indication: HIV INFECTION
     Route: 048
     Dates: start: 20050823, end: 20060119
  3. KALETRA [Concomitant]
     Indication: HIV INFECTION
     Route: 048
     Dates: start: 20050823, end: 20060119
  4. CO-TRIMOXAZOLE [Concomitant]
     Indication: ANTIFUNGAL PROPHYLAXIS
     Route: 048
     Dates: start: 20050128

REACTIONS (13)
  - ABDOMINAL PAIN [None]
  - ACIDOSIS [None]
  - BLOOD BICARBONATE INCREASED [None]
  - BLOOD CHLORIDE INCREASED [None]
  - BLOOD CREATININE INCREASED [None]
  - BLOOD PHOSPHORUS DECREASED [None]
  - FANCONI SYNDROME ACQUIRED [None]
  - GLYCOSURIA [None]
  - MALAISE [None]
  - POLYURIA [None]
  - PROTEINURIA [None]
  - THIRST [None]
  - WEIGHT DECREASED [None]
